FAERS Safety Report 5799819-4 (Version None)
Quarter: 2008Q3

REPORT INFORMATION
  Report Type: 
  Country: None (occurrence: None)
  Receive Date: 20080703
  Receipt Date: 20080619
  Transmission Date: 20090109
  Serious: Yes (Death, Other)
  Sender: FDA-Public Use
  Company Number: DE-BAYER-200821335GPV

PATIENT

DRUGS (4)
  1. FLUDARABINE PHOSPHATE [Suspect]
     Indication: T-CELL LYMPHOMA
     Route: 065
  2. CARMUSTINE [Suspect]
     Indication: STEM CELL TRANSPLANT
     Route: 065
  3. MELPHALAN [Suspect]
     Indication: T-CELL LYMPHOMA
     Route: 065
  4. CYCLOSPORINE [Suspect]
     Indication: PROPHYLAXIS AGAINST GRAFT VERSUS HOST DISEASE
     Route: 065

REACTIONS (3)
  - MULTI-ORGAN FAILURE [None]
  - PULMONARY TOXICITY [None]
  - SEPSIS [None]
